FAERS Safety Report 12524107 (Version 1)
Quarter: 2016Q3

REPORT INFORMATION
  Report Type: Spontaneous
  Country: US (occurrence: US)
  Receive Date: 20160704
  Receipt Date: 20160704
  Transmission Date: 20161109
  Serious: No
  Sender: FDA-Public Use
  Company Number: US-009507513-1606USA007359

PATIENT
  Sex: Female
  Weight: 64.4 kg

DRUGS (1)
  1. NEXPLANON [Suspect]
     Active Substance: ETONOGESTREL
     Indication: CONTRACEPTION
     Dosage: 3 YEAR IMPLANT
     Route: 059
     Dates: start: 20150519

REACTIONS (10)
  - Menorrhagia [Unknown]
  - Breast pain [Unknown]
  - Dizziness [Unknown]
  - Abdominal pain [Unknown]
  - Pharyngitis [Unknown]
  - Implant site pain [Unknown]
  - Complication associated with device [Unknown]
  - Headache [Unknown]
  - Amenorrhoea [Unknown]
  - Sinusitis [Unknown]
